FAERS Safety Report 6899007-4 (Version None)
Quarter: 2010Q3

REPORT INFORMATION
  Report Type: 
  Country: None (occurrence: None)
  Receive Date: 20100802
  Receipt Date: 20071218
  Transmission Date: 20110219
  Serious: No
  Sender: FDA-Public Use
  Company Number: US-PFIZER INC-2007106690

PATIENT
  Sex: Male
  Weight: 121.1 kg

DRUGS (7)
  1. LYRICA [Suspect]
     Indication: HYPOAESTHESIA
     Route: 048
     Dates: start: 20071101
  2. LYRICA [Suspect]
     Indication: PAIN
  3. TARKA [Concomitant]
  4. SITAGLIPTIN [Concomitant]
  5. PROTONIX [Concomitant]
  6. PRIMIDONE [Concomitant]
  7. OXYCODONE [Concomitant]

REACTIONS (1)
  - DIZZINESS [None]
